FAERS Safety Report 14410477 (Version 4)
Quarter: 2020Q2

REPORT INFORMATION
  Report Type: Report from Study
  Country: US (occurrence: US)
  Receive Date: 20180119
  Receipt Date: 20200611
  Transmission Date: 20200713
  Serious: No
  Sender: FDA-Public Use
  Company Number: PHEH2018US002478

PATIENT
  Sex: Female

DRUGS (2)
  1. ILARIS [Suspect]
     Active Substance: CANAKINUMAB
     Dosage: UNK
     Route: 065
     Dates: start: 20180115
  2. ILARIS [Suspect]
     Active Substance: CANAKINUMAB
     Indication: CRYOPYRIN ASSOCIATED PERIODIC SYNDROME
     Dosage: 150 MG, EVERY 8 WEEKS
     Route: 058

REACTIONS (8)
  - Malaise [Unknown]
  - Joint swelling [Unknown]
  - Rash macular [Unknown]
  - Chills [Unknown]
  - Ocular hyperaemia [Unknown]
  - Feeling cold [Unknown]
  - Inappropriate schedule of product administration [Unknown]
  - Pyrexia [Unknown]
